FAERS Safety Report 7513862-6 (Version None)
Quarter: 2011Q2

REPORT INFORMATION
  Report Type: 
  Country: None (occurrence: None)
  Receive Date: 20110531
  Receipt Date: 20110520
  Transmission Date: 20111010
  Serious: Yes (Other)
  Sender: FDA-Public Use
  Company Number: PHHY2011JP06999

PATIENT
  Sex: Female
  Weight: 50 kg

DRUGS (9)
  1. PROTECADIN [Concomitant]
     Dosage: 20 MG, UNK
     Route: 048
  2. DOGMATYL [Concomitant]
     Dosage: 50 MG, UNK
     Route: 048
  3. CANDESARTAN CILEXETIL [Concomitant]
     Dosage: 08 MG, UNK
     Route: 048
  4. NORVASC [Concomitant]
     Dosage: 2.5 MG, UNK
     Route: 048
  5. MUCOSTA [Concomitant]
     Dosage: 300 MG, UNK
     Route: 048
  6. ZOMETA [Suspect]
     Indication: BREAST CANCER
     Dosage: 04 MG, UNK
     Route: 041
     Dates: start: 20110125, end: 20110125
  7. ASPIRIN [Concomitant]
     Dosage: 100 MG, UNK
     Route: 048
  8. LOXONIN [Concomitant]
     Dosage: 180 MG, UNK
     Route: 048
  9. DUROTEP [Concomitant]

REACTIONS (2)
  - DISORIENTATION [None]
  - AMNESIA [None]
